FAERS Safety Report 21081671 (Version 2)
Quarter: 2022Q3

REPORT INFORMATION
  Report Type: Spontaneous
  Country: US (occurrence: US)
  Receive Date: 20220714
  Receipt Date: 20220727
  Transmission Date: 20221027
  Serious: No
  Sender: FDA-Public Use
  Company Number: US-BIOGEN-2022BI01138990

PATIENT
  Sex: Female

DRUGS (18)
  1. VUMERITY [Suspect]
     Active Substance: DIROXIMEL FUMARATE
     Indication: Multiple sclerosis
     Dosage: FOR 7 DAYS
     Route: 050
  2. VUMERITY [Suspect]
     Active Substance: DIROXIMEL FUMARATE
     Route: 050
     Dates: start: 20220625
  3. VUMERITY [Suspect]
     Active Substance: DIROXIMEL FUMARATE
     Route: 050
  4. ALPRAZOLAM [Concomitant]
     Active Substance: ALPRAZOLAM
     Route: 050
  5. AUBAGIO [Concomitant]
     Active Substance: TERIFLUNOMIDE
     Route: 050
  6. BUTALBITAL AND ACETAMINOPHEN [Concomitant]
     Active Substance: ACETAMINOPHEN\BUTALBITAL
     Dosage: 50-300 MG
     Route: 050
  7. CYCLOBENZAPRINE [Concomitant]
     Active Substance: CYCLOBENZAPRINE
     Route: 050
  8. DULOXETINE [Concomitant]
     Active Substance: DULOXETINE
     Route: 050
  9. DULOXETINE [Concomitant]
     Active Substance: DULOXETINE
     Route: 050
  10. ESCITALOPRAM [Concomitant]
     Active Substance: ESCITALOPRAM OXALATE
     Route: 050
  11. GABAPENTIN [Concomitant]
     Active Substance: GABAPENTIN
     Route: 050
  12. LEVOTHYROXINE [Concomitant]
     Active Substance: LEVOTHYROXINE
     Route: 050
  13. LEVOTHYROXINE [Concomitant]
     Active Substance: LEVOTHYROXINE
     Route: 050
  14. OMEPRAZOLE [Concomitant]
     Active Substance: OMEPRAZOLE
     Route: 050
  15. TAMOXIFEN [Concomitant]
     Active Substance: TAMOXIFEN
     Route: 050
  16. TEMAZEPAM [Concomitant]
     Active Substance: TEMAZEPAM
     Route: 050
  17. TOPIRAMATE [Concomitant]
     Active Substance: TOPIRAMATE
     Route: 050
  18. TRAMADOL HCL [Concomitant]
     Active Substance: TRAMADOL HYDROCHLORIDE
     Route: 050

REACTIONS (3)
  - Gastrointestinal disorder [Unknown]
  - Flushing [Unknown]
  - Diarrhoea [Unknown]
